FAERS Safety Report 9194362 (Version 1)
Quarter: 2013Q1

REPORT INFORMATION
  Report Type: Spontaneous
  Country: US (occurrence: US)
  Receive Date: 20130327
  Receipt Date: 20130327
  Transmission Date: 20140127
  Serious: Yes (Hospitalization)
  Sender: FDA-Public Use
  Company Number: US-B.I. PHARMACEUTICALS,INC./RIDGEFIELD-2013-BI-07571BP

PATIENT
  Age: 79 Year
  Sex: Male

DRUGS (10)
  1. PRADAXA [Suspect]
     Indication: ATRIAL FIBRILLATION
     Dosage: 300 MG
     Route: 048
  2. PRADAXA [Suspect]
     Indication: CEREBROVASCULAR ACCIDENT PROPHYLAXIS
  3. SIMVASTATIN [Concomitant]
     Dosage: 20 MG
     Route: 048
  4. COREG [Concomitant]
     Dosage: 50 MG
     Route: 048
  5. DIGOXIN [Concomitant]
     Dosage: 0.125 MG
     Route: 048
  6. LASIX [Concomitant]
     Dosage: 80 MG
     Route: 048
  7. LISINOPRIL [Concomitant]
     Dosage: 40 MG
     Route: 048
  8. AMLODIPINE [Concomitant]
     Dosage: 5 MG
     Route: 048
  9. POTASSIUM [Concomitant]
     Dosage: 40 MEQ
     Route: 048
  10. MAGNESIUM [Concomitant]
     Route: 048

REACTIONS (1)
  - Cerebrovascular accident [Recovered/Resolved with Sequelae]
